FAERS Safety Report 5337651-6 (Version None)
Quarter: 2007Q2

REPORT INFORMATION
  Report Type: 
  Country: None (occurrence: None)
  Receive Date: 20070524
  Receipt Date: 20070514
  Transmission Date: 20071010
  Serious: Yes (Other)
  Sender: FDA-Public Use
  Company Number: 233379K07USA

PATIENT
  Age: 53 Year
  Sex: Female

DRUGS (1)
  1. REBIF [Suspect]
     Indication: MULTIPLE SCLEROSIS
     Dosage: 44 MCG, 3 IN 1 WEEKS, SUBCUTANEOUS
     Route: 058
     Dates: start: 20070324, end: 20070501

REACTIONS (6)
  - ANXIETY [None]
  - ASTHENIA [None]
  - CHOLELITHIASIS [None]
  - GALLBLADDER DISORDER [None]
  - INSOMNIA [None]
  - NEUROGENIC BLADDER [None]
